FAERS Safety Report 8491034-9 (Version None)
Quarter: 2012Q3

REPORT INFORMATION
  Report Type: 
  Country: None (occurrence: None)
  Receive Date: 20120706
  Receipt Date: 20120622
  Transmission Date: 20120928
  Serious: Yes (Hospitalization)
  Sender: FDA-Public Use
  Company Number: US-ELI_LILLY_AND_COMPANY-US201206008172

PATIENT
  Sex: Female

DRUGS (2)
  1. FORTEO [Suspect]
     Indication: OSTEOPOROSIS
     Dosage: 20 UG, QD
  2. DIOVAN [Concomitant]
     Dosage: UNK

REACTIONS (6)
  - UPPER LIMB FRACTURE [None]
  - WRIST FRACTURE [None]
  - TOOTH ABSCESS [None]
  - BLOOD PRESSURE INCREASED [None]
  - FALL [None]
  - TOOTHACHE [None]
